FAERS Safety Report 18664768 (Version 1)
Quarter: 2020Q4

REPORT INFORMATION
  Report Type: Report from Study
  Country: DE (occurrence: DE)
  Receive Date: 20201225
  Receipt Date: 20201225
  Transmission Date: 20210114
  Serious: Yes (Hospitalization, Other)
  Sender: FDA-Public Use
  Company Number: DE-SHILPA MEDICARE LIMITED-SML-DE-2020-00885

PATIENT
  Age: 48 Year
  Sex: Male
  Weight: 73 kg

DRUGS (13)
  1. DOCETAXEL, UNKNOWN [Suspect]
     Active Substance: DOCETAXEL
     Indication: LUNG ADENOCARCINOMA
     Dosage: FORMULATION: LIQUID DOSE: 75 MG/M2 BSA
     Route: 065
     Dates: start: 20190712
  2. PALLADON [Concomitant]
     Active Substance: HYDROMORPHONE
     Indication: PAIN
  3. VARGATEF [Suspect]
     Active Substance: NINTEDANIB
     Dates: start: 20190810, end: 20190814
  4. ORFIRIL [Concomitant]
     Active Substance: VALPROATE SODIUM
     Indication: EPILEPSY
     Dosage: ORAL/PER OS (P.O)
     Route: 048
     Dates: start: 20190314
  5. PREDNISOLON [Concomitant]
     Active Substance: PREDNISOLONE
     Indication: AUTOIMMUNE NEPHRITIS
     Route: 065
     Dates: start: 201804, end: 201909
  6. LAMOTRIGIN [Concomitant]
     Active Substance: LAMOTRIGINE
     Indication: PRODUCT USED FOR UNKNOWN INDICATION
     Dosage: ORAL/PER OS (P.O)
     Route: 048
     Dates: start: 20190315
  7. VARGATEF [Suspect]
     Active Substance: NINTEDANIB
     Indication: LUNG ADENOCARCINOMA
     Dosage: BID
     Route: 065
     Dates: start: 20190713, end: 20190808
  8. VARGATEF [Suspect]
     Active Substance: NINTEDANIB
     Dosage: 2X100 MG
     Dates: start: 20190823
  9. FOLIC ACID. [Concomitant]
     Active Substance: FOLIC ACID
     Indication: PRODUCT USED FOR UNKNOWN INDICATION
     Route: 065
     Dates: start: 20180928
  10. NOVALGIN [Concomitant]
     Indication: PAIN
     Route: 065
     Dates: start: 201907
  11. PALLADON [Concomitant]
     Active Substance: HYDROMORPHONE
     Indication: PRODUCT USED FOR UNKNOWN INDICATION
     Dosage: ORAL/PER OS (P.O)
     Route: 048
     Dates: start: 20190703
  12. PANTOPRAZOL [Concomitant]
     Active Substance: PANTOPRAZOLE SODIUM
     Indication: GASTRITIS
     Route: 065
     Dates: start: 201810
  13. GRANISETRON [Concomitant]
     Active Substance: GRANISETRON
     Indication: NAUSEA
     Route: 065
     Dates: start: 201810

REACTIONS (11)
  - Neutrophil count decreased [Recovered/Resolved]
  - White blood cell count decreased [Recovered/Resolved]
  - Pneumonia [Recovered/Resolved]
  - Nausea [Recovered/Resolved]
  - Diarrhoea [Not Recovered/Not Resolved]
  - Vomiting [Recovered/Resolved]
  - Fatigue [Recovered/Resolved]
  - Hepatic enzyme increased [Recovered/Resolved]
  - Depression [Not Recovered/Not Resolved]
  - Vertigo [Recovered/Resolved]
  - Pneumonia [Recovered/Resolved]

NARRATIVE: CASE EVENT DATE: 20190714
